FAERS Safety Report 14630813 (Version 1)
Quarter: 2018Q1

REPORT INFORMATION
  Report Type: Spontaneous
  Country: US (occurrence: US)
  Receive Date: 20180313
  Receipt Date: 20180313
  Transmission Date: 20180509
  Serious: Yes (Hospitalization)
  Sender: FDA-Public Use
  Company Number: US-VALIDUS PHARMACEUTICALS LLC-US-2018VAL000490

PATIENT

DRUGS (4)
  1. TYVASO [Suspect]
     Active Substance: TREPROSTINIL
     Indication: PULMONARY HYPERTENSION
     Dosage: 18-54 UG, QID (ROUTE: INHALATION)
     Route: 065
     Dates: start: 20171013
  2. LASIX [Suspect]
     Active Substance: FUROSEMIDE
     Indication: PRODUCT USED FOR UNKNOWN INDICATION
     Dosage: UNK
     Route: 065
  3. TYVASO [Suspect]
     Active Substance: TREPROSTINIL
     Dosage: UNK
     Route: 065
  4. LASIX [Suspect]
     Active Substance: FUROSEMIDE
     Dosage: UNK (DOUBLE DOSE)
     Route: 065

REACTIONS (6)
  - Nasopharyngitis [Unknown]
  - Fluid retention [Unknown]
  - Cough [Unknown]
  - Dyspnoea [Unknown]
  - Presyncope [Unknown]
  - Peripheral swelling [Recovering/Resolving]
